FAERS Safety Report 8996173 (Version 1)
Quarter: 2013Q1

REPORT INFORMATION
  Report Type: Spontaneous
  Country: CH (occurrence: CH)
  Receive Date: 20130103
  Receipt Date: 20130103
  Transmission Date: 20140127
  Serious: Yes (Other)
  Sender: FDA-Public Use
  Company Number: PHHY2012CH121774

PATIENT
  Sex: Male

DRUGS (2)
  1. TACROLIMUS [Suspect]
     Indication: RENAL TRANSPLANT
  2. VALPROIC ACID [Suspect]
     Indication: RENAL TRANSPLANT

REACTIONS (3)
  - Suicidal ideation [Unknown]
  - Intentional overdose [Unknown]
  - Somnolence [Unknown]
